FAERS Safety Report 18274310 (Version 1)
Quarter: 2020Q3

REPORT INFORMATION
  Report Type: Spontaneous
  Country: US (occurrence: US)
  Receive Date: 20200916
  Receipt Date: 20200916
  Transmission Date: 20201103
  Serious: Yes (Hospitalization)
  Sender: FDA-Public Use
  Company Number: US-JNJFOC-20200913167

PATIENT
  Age: 53 Year
  Sex: Female

DRUGS (1)
  1. INVOKANA [Suspect]
     Active Substance: CANAGLIFLOZIN
     Indication: PRODUCT USED FOR UNKNOWN INDICATION
     Route: 048

REACTIONS (5)
  - Osteomyelitis acute [Unknown]
  - Gangrene [Unknown]
  - Diabetic foot infection [Unknown]
  - Staphylococcal infection [Unknown]
  - Foot amputation [Unknown]

NARRATIVE: CASE EVENT DATE: 201705
